FAERS Safety Report 7733525-1 (Version None)
Quarter: 2011Q3

REPORT INFORMATION
  Report Type: 
  Country: None (occurrence: None)
  Receive Date: 20110907
  Receipt Date: 20110907
  Transmission Date: 20111222
  Serious: Yes (Life-Threatening)
  Sender: FDA-Public Use
  Company Number: None

PATIENT
  Age: 30 Year
  Sex: Male
  Weight: 65.77 kg

DRUGS (1)
  1. CYMBALTA [Suspect]
     Indication: DEPRESSION
     Dosage: 60 MG
     Route: 048
     Dates: start: 20110710, end: 20110905

REACTIONS (3)
  - MENTAL DISORDER [None]
  - SUICIDAL IDEATION [None]
  - MANIA [None]
